FAERS Safety Report 10244204 (Version 5)
Quarter: 2015Q1

REPORT INFORMATION
  Report Type: Report from Study
  Country: FR (occurrence: RU)
  Receive Date: 20140618
  Receipt Date: 20150312
  Transmission Date: 20150720
  Serious: Yes (Other)
  Sender: FDA-Public Use
  Company Number: RU-FRI-1000068196

PATIENT
  Age: 63 Year
  Sex: Male
  Weight: 83 kg

DRUGS (10)
  1. OMEPRAZOL [Concomitant]
     Active Substance: OMEPRAZOLE
     Dosage: 20 MG
     Dates: start: 20140603
  2. CERETON [Concomitant]
     Dosage: 1000 MG
     Route: 042
     Dates: start: 20140527
  3. CLOPIDOGREL [Concomitant]
     Active Substance: CLOPIDOGREL BISULFATE
     Dosage: 75 MG
     Dates: start: 20140514
  4. ATORVASTATIN [Concomitant]
     Active Substance: ATORVASTATIN
     Dosage: 40 MG
     Dates: start: 20140516
  5. LORISTA [Concomitant]
     Active Substance: LOSARTAN POTASSIUM
     Dosage: 100 MG
     Dates: start: 20140519
  6. AMLODIPIN [Concomitant]
     Active Substance: AMLODIPINE BESYLATE
     Dosage: 10 MG
     Dates: start: 20140522
  7. LEVOMILNACIPRAN EXTENDED-RELEASE CAP [Suspect]
     Active Substance: LEVOMILNACIPRAN
     Indication: CEREBROVASCULAR ACCIDENT
     Dosage: 2 DOSAGE FORMS
     Route: 048
     Dates: start: 20140522, end: 20140605
  8. NORBACTIN [Concomitant]
     Dosage: 800 MG
     Dates: start: 20140522, end: 20140603
  9. CORTEXIN [Concomitant]
     Dosage: 10 MG
     Route: 030
     Dates: start: 20140522, end: 20140602
  10. HEPARIN [Concomitant]
     Active Substance: HEPARIN SODIUM
     Dosage: 5000 IU
     Route: 058

REACTIONS (5)
  - Mental disorder due to a general medical condition [Recovering/Resolving]
  - Confusional state [Recovering/Resolving]
  - Psychomotor hyperactivity [Recovering/Resolving]
  - Asthenia [Recovering/Resolving]
  - Apathy [Recovering/Resolving]

NARRATIVE: CASE EVENT DATE: 20140526
